FAERS Safety Report 11047615 (Version 3)
Quarter: 2015Q2

REPORT INFORMATION
  Report Type: Spontaneous
  Country: CH (occurrence: AT)
  Receive Date: 20150420
  Receipt Date: 20150605
  Transmission Date: 20150821
  Serious: Yes (Hospitalization)
  Sender: FDA-Public Use
  Company Number: CH-LPDUSPRD-20150204

PATIENT
  Age: 50 Year
  Sex: Female

DRUGS (1)
  1. FERINJECT [Suspect]
     Active Substance: FERRIC CARBOXYMALTOSE
     Dosage: 1000 MG, 1 IN 1 TOTAL
     Route: 041
     Dates: start: 20120229, end: 20120229

REACTIONS (18)
  - Feeling abnormal [Unknown]
  - Feeling cold [Unknown]
  - Pain [Unknown]
  - Decreased appetite [Unknown]
  - Tongue dry [Unknown]
  - Groin pain [Unknown]
  - Arthralgia [Unknown]
  - General physical health deterioration [Unknown]
  - Rhabdomyolysis [Unknown]
  - Insomnia [Unknown]
  - Asthenia [Unknown]
  - Muscle spasms [Unknown]
  - Burning sensation [Unknown]
  - Breath sounds abnormal [Unknown]
  - Nausea [Unknown]
  - Wrong technique in drug usage process [Unknown]
  - Abdominal pain [Unknown]
  - Bone pain [Unknown]

NARRATIVE: CASE EVENT DATE: 20120229
